FAERS Safety Report 23800552 (Version 1)
Quarter: 2024Q2

REPORT INFORMATION
  Report Type: Spontaneous
  Country: US (occurrence: US)
  Receive Date: 20240430
  Receipt Date: 20240430
  Transmission Date: 20240716
  Serious: Yes (Hospitalization, Other)
  Sender: FDA-Public Use
  Company Number: US-Kenton Chemicals + Pharmaceuticals Corporation-2156331

PATIENT
  Age: 29 Year
  Sex: Male

DRUGS (3)
  1. ANASTROZOLE [Suspect]
     Active Substance: ANASTROZOLE
     Indication: Muscle mass
     Route: 065
  2. ANASTROZOLE [Suspect]
     Active Substance: ANASTROZOLE
     Indication: Product use in unapproved indication
  3. CLOMIPHENE [Suspect]
     Active Substance: CLOMIPHENE
     Route: 065

REACTIONS (3)
  - Cardiomyopathy [Unknown]
  - Product use in unapproved indication [Unknown]
  - Secondary hypogonadism [Unknown]
